FAERS Safety Report 5565550-3 (Version None)
Quarter: 2007Q4

REPORT INFORMATION
  Report Type: 
  Country: None (occurrence: None)
  Receive Date: 20071218
  Receipt Date: 20050826
  Transmission Date: 20080405
  Serious: Yes (Death, Other)
  Sender: FDA-Public Use
  Company Number: JP-ROCHE-413557

PATIENT
  Age: 84 Year
  Sex: Male

DRUGS (4)
  1. ROCEPHIN [Suspect]
     Indication: PNEUMONIA
     Route: 041
     Dates: start: 20050804, end: 20050804
  2. TIENAM [Concomitant]
     Dates: start: 20050701
  3. DALACIN [Concomitant]
     Dates: start: 20050701
  4. CIPROFLOXACIN [Concomitant]
     Dates: start: 20050701

REACTIONS (2)
  - RESPIRATORY FAILURE [None]
  - WHITE BLOOD CELL COUNT DECREASED [None]
